FAERS Safety Report 9668048 (Version 4)
Quarter: 2014Q2

REPORT INFORMATION
  Report Type: Spontaneous
  Country: US (occurrence: None)
  Receive Date: 20131101
  Receipt Date: 20140404
  Transmission Date: 20141212
  Serious: Yes (Other)
  Sender: FDA-Public Use
  Company Number: 2013-US-002186

PATIENT
  Age: 55 Year
  Sex: Female
  Weight: 79.4 kg

DRUGS (13)
  1. XYREM [Suspect]
     Indication: NARCOLEPSY
     Route: 048
     Dates: start: 201310, end: 201310
  2. LEVOTHYROXINE (LEVOTHYROXINE SODIUM) [Concomitant]
  3. OMEPRAZOLE (OMEPRAZOLE SODIUM) [Concomitant]
  4. FOLIC AICD (FOLIC ACID) [Concomitant]
  5. BIOTIN (BIOTIN) [Concomitant]
  6. MAGNESIUM (ALUMINUM HYDROXIDE, MAGNESIUM HYDROXIDE) [Concomitant]
  7. IRON (FERROUS SULFATE) [Concomitant]
  8. MULTIVITAMINS (ASCORBIC ACID, ERGOCALCIFEROL, FOLIC ACID, NICOTINAMIDE, PANTHENOL, RETINOL, RIBOFLFAVIN, THIAMINE HYDROCHLORIDE) [Concomitant]
  9. CALCIUM (CALCIUM GLUCONATE) [Concomitant]
  10. VITAMIN B5 (CALCIUM PANTOTHENATE) [Concomitant]
  11. VITAMIN B12 (HYDROXOCOBALMIN) [Concomitant]
  12. FISH OIL (FISH OIL) [Concomitant]
  13. VITAMIN D3 (VITAMIN D3) [Concomitant]

REACTIONS (11)
  - Asthma [None]
  - Chest discomfort [None]
  - Rash [None]
  - Feeling abnormal [None]
  - Hypertension [None]
  - Feeling abnormal [None]
  - Snoring [None]
  - Apnoeic attack [None]
  - Headache [None]
  - Drug ineffective [None]
  - Chest discomfort [None]
